FAERS Safety Report 24991698 (Version 3)
Quarter: 2025Q1

REPORT INFORMATION
  Report Type: Spontaneous
  Country: IT (occurrence: IT)
  Receive Date: 20250220
  Receipt Date: 20250310
  Transmission Date: 20250409
  Serious: Yes (Life-Threatening, Hospitalization, Other)
  Sender: ALEXION PHARMACEUTICALS
  Company Number: None

PATIENT
  Age: 36 Year

DRUGS (12)
  1. QUETIAPINE FUMARATE [Suspect]
     Active Substance: QUETIAPINE FUMARATE
     Indication: Intentional self-injury
     Dosage: 100 MILLIGRAM, QD
  2. QUETIAPINE FUMARATE [Suspect]
     Active Substance: QUETIAPINE FUMARATE
     Dosage: 2400 MILLIGRAM, QD
  3. CLONAZEPAM [Suspect]
     Active Substance: CLONAZEPAM
     Indication: Intentional self-injury
  4. VALPROATE SODIUM [Suspect]
     Active Substance: VALPROATE SODIUM
     Indication: Intentional self-injury
     Dosage: 1500 MILLIGRAM, QD
  5. VALPROATE SODIUM [Suspect]
     Active Substance: VALPROATE SODIUM
     Dosage: 2500 MILLIGRAM, QD
  6. ABILIFY [Suspect]
     Active Substance: ARIPIPRAZOLE
     Indication: Intentional self-injury
     Dosage: 40 MILLIGRAM, QD
  7. LAMICTAL [Suspect]
     Active Substance: LAMOTRIGINE
     Indication: Intentional self-injury
     Dosage: 200 MILLIGRAM, QD
  8. VENLAFAXINE HYDROCHLORIDE [Suspect]
     Active Substance: VENLAFAXINE HYDROCHLORIDE
     Indication: Intentional self-injury
     Dosage: 300 MILLIGRAM, QD
  9. PERINDOPRIL [Suspect]
     Active Substance: PERINDOPRIL
     Indication: Intentional self-injury
     Dosage: 16 MILLIGRAM, QD
  10. FUROSEMIDE [Suspect]
     Active Substance: FUROSEMIDE
     Indication: Intentional self-injury
     Dosage: 100 MILLIGRAM, QD
  11. LITHIUM CARBONATE [Suspect]
     Active Substance: LITHIUM CARBONATE
     Dosage: 300 MILLIGRAM, QD
  12. PAROXETINE [Suspect]
     Active Substance: PAROXETINE
     Dosage: 100 MILLIGRAM, QD

REACTIONS (4)
  - Drug abuse [Recovered/Resolved]
  - Intentional self-injury [Recovered/Resolved]
  - Sopor [Recovered/Resolved]
  - Intentional self-injury [Recovered/Resolved]
